FAERS Safety Report 25502017 (Version 1)
Quarter: 2025Q3

REPORT INFORMATION
  Report Type: Spontaneous
  Country: EU (occurrence: EU)
  Receive Date: 20250702
  Receipt Date: 20250702
  Transmission Date: 20251021
  Serious: Yes (Hospitalization, Other)
  Sender: AUROBINDO
  Company Number: EU-AFSSAPS-RN2025000558

PATIENT
  Age: 72 Year
  Sex: Male

DRUGS (4)
  1. ALLOPURINOL [Suspect]
     Active Substance: ALLOPURINOL
     Indication: Hyperuricaemia
     Dosage: 200 MILLIGRAM, ONCE A DAY (200 MG/J)
     Route: 048
     Dates: start: 20250327, end: 20250601
  2. BISOPROLOL [Suspect]
     Active Substance: BISOPROLOL
     Indication: Ventricular extrasystoles
     Dates: start: 20250611
  3. COLCHICINE [Suspect]
     Active Substance: COLCHICINE
     Indication: Gout
     Route: 048
     Dates: start: 20250519, end: 20250601
  4. AUGMENTIN [Suspect]
     Active Substance: AMOXICILLIN\CLAVULANATE POTASSIUM
     Indication: Infection
     Dosage: 3 GRAM, ONCE A DAY (3 G / JOUR)
     Route: 048
     Dates: start: 20250610

REACTIONS (4)
  - Neutropenia [Not Recovered/Not Resolved]
  - Rash maculo-papular [Not Recovered/Not Resolved]
  - Pyrexia [Not Recovered/Not Resolved]
  - Asthenia [Not Recovered/Not Resolved]

NARRATIVE: CASE EVENT DATE: 20250528
